FAERS Safety Report 6486911-4 (Version None)
Quarter: 2009Q4

REPORT INFORMATION
  Report Type: 
  Country: None (occurrence: None)
  Receive Date: 20091209
  Receipt Date: 20091209
  Transmission Date: 20100525
  Serious: Yes (Other)
  Sender: FDA-Public Use
  Company Number: None

PATIENT
  Age: 46 Year
  Sex: Male
  Weight: 58.9676 kg

DRUGS (2)
  1. ZICAM COLD REMEDY NASAL GEL MATRIXX [Suspect]
     Indication: NASOPHARYNGITIS
     Dosage: ONE SQUIRT ENDOSINUSIAL
     Route: 006
     Dates: start: 20080210, end: 20080215
  2. ZICAM COLD REMEDY NASAL GEL [Concomitant]

REACTIONS (2)
  - ANOSMIA [None]
  - NASAL DISCOMFORT [None]
